FAERS Safety Report 15650153 (Version 2)
Quarter: 2019Q1

REPORT INFORMATION
  Report Type: Spontaneous
  Country: US (occurrence: US)
  Receive Date: 20181123
  Receipt Date: 20190101
  Transmission Date: 20190417
  Serious: No
  Sender: FDA-Public Use
  Company Number: US-AMGEN-USASP2018166176

PATIENT
  Age: 56 Year

DRUGS (1)
  1. EPOGEN [Suspect]
     Active Substance: ERYTHROPOIETIN
     Indication: PRODUCT USED FOR UNKNOWN INDICATION
     Dosage: 1400 UNIT, UNK (20,000 UNITS/ 2ML)
     Route: 065

REACTIONS (2)
  - Wrong technique in product usage process [Unknown]
  - Product storage error [Unknown]

NARRATIVE: CASE EVENT DATE: 201811
